FAERS Safety Report 19396525 (Version 1)
Quarter: 2021Q2

REPORT INFORMATION
  Report Type: Report from Study
  Country: US (occurrence: US)
  Receive Date: 20210609
  Receipt Date: 20210609
  Transmission Date: 20210717
  Serious: Yes (Death, Life-Threatening, Hospitalization)
  Sender: FDA-Public Use
  Company Number: US-GLAXOSMITHKLINE-US2021GSK123115

PATIENT
  Age: 82 Year
  Sex: Male
  Weight: 81.4 kg

DRUGS (5)
  1. COBOLIMAB. [Suspect]
     Active Substance: COBOLIMAB
     Indication: HEPATOCELLULAR CARCINOMA
     Dosage: UNK
     Route: 042
     Dates: start: 20210408, end: 20210408
  2. DOSTARLIMAB [Suspect]
     Active Substance: DOSTARLIMAB
     Indication: HEPATOCELLULAR CARCINOMA
     Dosage: UNK
     Route: 042
     Dates: start: 20210408, end: 20210408
  3. COBOLIMAB. [Suspect]
     Active Substance: COBOLIMAB
     Dosage: UNK
     Route: 042
     Dates: start: 20210429, end: 20210429
  4. DOSTARLIMAB [Suspect]
     Active Substance: DOSTARLIMAB
     Dosage: UNK
     Route: 042
     Dates: start: 20210429, end: 20210429
  5. ONDANSETRON [Concomitant]
     Active Substance: ONDANSETRON
     Indication: NAUSEA
     Dosage: UNK
     Dates: start: 20210513

REACTIONS (2)
  - Neutropenic sepsis [Fatal]
  - Cardiac arrest [Fatal]

NARRATIVE: CASE EVENT DATE: 20210515
